FAERS Safety Report 5267769-8 (Version None)
Quarter: 2007Q1

REPORT INFORMATION
  Report Type: 
  Country: None (occurrence: None)
  Receive Date: 20070316
  Receipt Date: 20070305
  Transmission Date: 20070707
  Serious: Yes (Life-Threatening)
  Sender: FDA-Public Use
  Company Number: JP-PFIZER INC-2007017369

PATIENT
  Age: 77 Year
  Sex: Female
  Weight: 52 kg

DRUGS (5)
  1. AMLODIN [Suspect]
     Indication: ANGINA PECTORIS
     Route: 048
     Dates: start: 20010101, end: 20060929
  2. ONON [Suspect]
     Indication: RHINITIS ALLERGIC
     Route: 048
     Dates: start: 20060901, end: 20060929
  3. CLARITHROMYCIN [Suspect]
     Indication: UPPER RESPIRATORY TRACT INFLAMMATION
     Route: 048
     Dates: start: 20060930, end: 20060930
  4. LOXONIN [Suspect]
     Indication: UPPER RESPIRATORY TRACT INFLAMMATION
     Route: 048
     Dates: start: 20060930, end: 20060930
  5. FIRSTCIN [Suspect]
     Indication: UPPER RESPIRATORY TRACT INFLAMMATION
     Route: 042
     Dates: start: 20060930, end: 20060930

REACTIONS (1)
  - STEVENS-JOHNSON SYNDROME [None]
